FAERS Safety Report 5176467-0 (Version None)
Quarter: 2006Q4

REPORT INFORMATION
  Report Type: 
  Country: None (occurrence: None)
  Receive Date: 20061207
  Receipt Date: 20061121
  Transmission Date: 20070319
  Serious: Yes (Hospitalization)
  Sender: FDA-Public Use
  Company Number: 8019253

PATIENT
  Age: 7 Year
  Sex: Male
  Weight: 17 kg

DRUGS (4)
  1. KEPPRA [Suspect]
     Indication: EPILEPSY
     Dosage: 250 MG 2/D PO
     Route: 048
     Dates: start: 20060301
  2. KEPPRA [Suspect]
     Indication: EPILEPSY
     Dosage: 625 MG PO
     Route: 048
  3. KEPPRA [Suspect]
     Indication: EPILEPSY
     Dosage: 125 MG PO
     Route: 048
  4. LUMINAL [Concomitant]

REACTIONS (1)
  - HYPOTHERMIA [None]
